FAERS Safety Report 23364725 (Version 1)
Quarter: 2024Q1

REPORT INFORMATION
  Report Type: Spontaneous
  Country: US (occurrence: US)
  Receive Date: 20240104
  Receipt Date: 20240104
  Transmission Date: 20240409
  Serious: No
  Sender: FDA-Public Use
  Company Number: US-002147023-NVSC2024US000957

PATIENT
  Age: 55 Year
  Sex: Female

DRUGS (1)
  1. LEQVIO [Suspect]
     Active Substance: INCLISIRAN SODIUM
     Indication: Type IIa hyperlipidaemia
     Dosage: UNK UNK, OTHER (284MG/1.5ML)
     Route: 058
     Dates: start: 20231013

REACTIONS (2)
  - Blood triglycerides increased [Unknown]
  - Injection site pain [Unknown]
